APPROVED DRUG PRODUCT: PALIPERIDONE
Active Ingredient: PALIPERIDONE
Strength: 9MG
Dosage Form/Route: TABLET, EXTENDED RELEASE;ORAL
Application: A205618 | Product #004 | TE Code: AB
Applicant: SUN PHARMACEUTICAL INDUSTRIES LTD
Approved: Apr 6, 2018 | RLD: No | RS: No | Type: RX